FAERS Safety Report 10425468 (Version 1)
Quarter: 2014Q3

REPORT INFORMATION
  Report Type: Spontaneous
  Country: PL (occurrence: PL)
  Receive Date: 20140902
  Receipt Date: 20140902
  Transmission Date: 20150326
  Serious: Yes (Hospitalization, Other)
  Sender: FDA-Public Use
  Company Number: PL-ASTRAZENECA-2014SE63586

PATIENT
  Age: 53 Year
  Sex: Male

DRUGS (7)
  1. PAMIDRONATE DISODIUM. [Concomitant]
     Active Substance: PAMIDRONATE DISODIUM
     Route: 042
  2. RAMIPRIL. [Concomitant]
     Active Substance: RAMIPRIL
  3. CARVEDILOL. [Concomitant]
     Active Substance: CARVEDILOL
  4. INDAPAMIDE. [Concomitant]
     Active Substance: INDAPAMIDE
     Route: 048
  5. BICALUTAMIDE. [Suspect]
     Active Substance: BICALUTAMIDE
     Indication: PROSTATE CANCER
     Route: 048
  6. GOSERELIN [Suspect]
     Active Substance: GOSERELIN
     Indication: PROSTATE CANCER
     Route: 058
  7. ACENOCUMAROL [Suspect]
     Active Substance: ACENOCOUMAROL
     Indication: ANTICOAGULANT THERAPY

REACTIONS (3)
  - Diabetes mellitus [Unknown]
  - Pustular psoriasis [Recovered/Resolved]
  - Hypercholesterolaemia [Unknown]

NARRATIVE: CASE EVENT DATE: 201203
